FAERS Safety Report 24369409 (Version 1)
Quarter: 2024Q3

REPORT INFORMATION
  Report Type: Report from Study
  Country: US (occurrence: US)
  Receive Date: 20240927
  Receipt Date: 20240927
  Transmission Date: 20241017
  Serious: No
  Sender: ROCHE
  Company Number: US-ROCHE-3298883

PATIENT
  Age: 26 Year
  Sex: Female
  Weight: 93.44 kg

DRUGS (5)
  1. LUCENTIS [Suspect]
     Active Substance: RANIBIZUMAB
     Indication: Retinal neovascularisation
     Dosage: RECEIVES IN LEFT EYE?INJECT 0.5 MG (0.05 ML) MONTHLY INTRAVITREALLY
     Route: 050
     Dates: start: 20230206
  2. AVASTIN [Suspect]
     Active Substance: BEVACIZUMAB
     Indication: Retinal neovascularisation
     Dosage: RECEIVED IN LEFT EYE
     Route: 065
     Dates: start: 2022
  3. FOLIC ACID [Concomitant]
     Active Substance: FOLIC ACID
  4. TYLENOL [Concomitant]
     Active Substance: ACETAMINOPHEN
  5. IBUPROFEN [Concomitant]
     Active Substance: IBUPROFEN

REACTIONS (4)
  - Maternal exposure before pregnancy [Unknown]
  - Off label use [Unknown]
  - Nausea [Not Recovered/Not Resolved]
  - Polycystic ovarian syndrome [Not Recovered/Not Resolved]

NARRATIVE: CASE EVENT DATE: 20230210
